FAERS Safety Report 5164347-6 (Version None)
Quarter: 2006Q4

REPORT INFORMATION
  Report Type: 
  Country: None (occurrence: None)
  Receive Date: 20061127
  Receipt Date: 20061127
  Transmission Date: 20070319
  Serious: No
  Sender: FDA-Public Use
  Company Number: None

PATIENT
  Sex: Male

DRUGS (1)
  1. FEXOFENADINE [Suspect]
     Indication: HYPERSENSITIVITY
     Dosage: 1 TABLET ONCE DAILY PO
     Route: 048
     Dates: start: 20061107, end: 20061115

REACTIONS (3)
  - FLUSHING [None]
  - HEART RATE IRREGULAR [None]
  - TINNITUS [None]
